FAERS Safety Report 12761879 (Version 1)
Quarter: 2016Q3

REPORT INFORMATION
  Report Type: Other
  Country: ZA (occurrence: ZA)
  Receive Date: 20160920
  Receipt Date: 20160920
  Transmission Date: 20161109
  Serious: Yes (Other)
  Sender: FDA-Public Use
  Company Number: ZA-ENDO PHARMACEUTICALS INC-2016-005716

PATIENT
  Age: 44 Year
  Sex: Male

DRUGS (2)
  1. ISONIAZID. [Suspect]
     Active Substance: ISONIAZID
     Indication: PRODUCT USED FOR UNKNOWN INDICATION
     Route: 065
  2. PYRAZINAMIDE TABLETS 500 MG [Suspect]
     Active Substance: PYRAZINAMIDE
     Indication: PRODUCT USED FOR UNKNOWN INDICATION
     Route: 065

REACTIONS (2)
  - Toxic epidermal necrolysis [Unknown]
  - Stevens-Johnson syndrome [Unknown]
